FAERS Safety Report 18625636 (Version 7)
Quarter: 2025Q1

REPORT INFORMATION
  Report Type: Report from Study
  Country: US (occurrence: US)
  Receive Date: 20201216
  Receipt Date: 20250130
  Transmission Date: 20250408
  Serious: Yes (Hospitalization, Other)
  Sender: TAKEDA
  Company Number: US-TAKEDA-2020TUS057271

PATIENT
  Sex: Female
  Weight: 104 kg

DRUGS (22)
  1. HUMAN IMMUNOGLOBULIN G [Suspect]
     Active Substance: HUMAN IMMUNOGLOBULIN G
     Indication: Chronic inflammatory demyelinating polyradiculoneuropathy
     Dosage: 100 GRAM, Q3WEEKS
     Dates: start: 20200321
  2. HUMAN IMMUNOGLOBULIN G [Suspect]
     Active Substance: HUMAN IMMUNOGLOBULIN G
  3. HUMAN IMMUNOGLOBULIN G [Suspect]
     Active Substance: HUMAN IMMUNOGLOBULIN G
     Dosage: 100 GRAM, Q3WEEKS
  4. ACETAMINOPHEN [Concomitant]
     Active Substance: ACETAMINOPHEN
  5. EPINEPHRINE [Concomitant]
     Active Substance: EPINEPHRINE
  6. VITAMIN C [Concomitant]
     Active Substance: ASCORBIC ACID
  7. LIPITOR [Concomitant]
     Active Substance: ATORVASTATIN CALCIUM
  8. CELEXA [Concomitant]
     Active Substance: CITALOPRAM HYDROBROMIDE
  9. VITAMIN D3 [Concomitant]
     Active Substance: CHOLECALCIFEROL
  10. SODIUM CHLORIDE [Concomitant]
     Active Substance: SODIUM CHLORIDE
  11. HEPARIN [Concomitant]
     Active Substance: HEPARIN SODIUM
  12. GABAPENTIN [Concomitant]
     Active Substance: GABAPENTIN
  13. LIDOCAINE [Concomitant]
     Active Substance: LIDOCAINE
  14. CELLCEPT [Concomitant]
     Active Substance: MYCOPHENOLATE MOFETIL
  15. DIPHENHYDRAMINE HYDROCHLORIDE [Concomitant]
     Active Substance: DIPHENHYDRAMINE HYDROCHLORIDE
  16. INDERAL LA [Concomitant]
     Active Substance: PROPRANOLOL HYDROCHLORIDE
  17. ZINC [Concomitant]
     Active Substance: ZINC
  18. HERBALS [Concomitant]
     Active Substance: HERBALS
  19. VITAMIN B COMPLEX [Concomitant]
     Active Substance: CYANOCOBALAMIN\DEXPANTHENOL\NIACINAMIDE\PYRIDOXINE HYDROCHLORIDE\RIBOFLAVIN 5^-PHOSPHATE SODIUM\THIA
  20. DIPHENHYDRAMINE [Concomitant]
     Active Substance: DIPHENHYDRAMINE
  21. Lmx [Concomitant]
  22. ULTRAM [Concomitant]
     Active Substance: TRAMADOL HYDROCHLORIDE

REACTIONS (10)
  - Abdominal abscess [Unknown]
  - Skin infection [Unknown]
  - Infusion related reaction [Recovered/Resolved]
  - COVID-19 [Unknown]
  - Catheter site discomfort [Unknown]
  - Weight decreased [Unknown]
  - Poor venous access [Unknown]
  - Device issue [Unknown]
  - Vomiting [Recovered/Resolved]
  - Nausea [Recovered/Resolved]
